FAERS Safety Report 25342360 (Version 1)
Quarter: 2025Q2

REPORT INFORMATION
  Report Type: Other
  Country: CA (occurrence: CA)
  Receive Date: 20250521
  Receipt Date: 20250521
  Transmission Date: 20250717
  Serious: Yes (Death)
  Sender: PFIZER
  Company Number: CA-PFIZER INC-202500104014

PATIENT
  Age: 55 Year
  Sex: Female

DRUGS (7)
  1. LIDOCAINE HYDROCHLORIDE [Suspect]
     Active Substance: LIDOCAINE HYDROCHLORIDE
  2. CAFFEINE [Suspect]
     Active Substance: CAFFEINE
  3. CYCLOBENZAPRINE [Suspect]
     Active Substance: CYCLOBENZAPRINE
  4. METHADONE HYDROCHLORIDE [Suspect]
     Active Substance: METHADONE HYDROCHLORIDE
  5. METHAMPHETAMINE [Suspect]
     Active Substance: METHAMPHETAMINE
  6. NALOXONE [Suspect]
     Active Substance: NALOXONE
  7. NICOTINE [Suspect]
     Active Substance: NICOTINE

REACTIONS (1)
  - Toxicity to various agents [Fatal]
